FAERS Safety Report 14151097 (Version 2)
Quarter: 2018Q4

REPORT INFORMATION
  Report Type: Spontaneous
  Country: IT (occurrence: IT)
  Receive Date: 20171102
  Receipt Date: 20181201
  Transmission Date: 20190204
  Serious: Yes (Other)
  Sender: FDA-Public Use
  Company Number: IT-ACCORD-060542

PATIENT
  Age: 72 Year
  Sex: Female
  Weight: 72 kg

DRUGS (2)
  1. PACLITAXEL/PACLITAXEL LIPOSOME [Suspect]
     Active Substance: PACLITAXEL
     Indication: NEOPLASM PROGRESSION
     Dosage: UNDERWENT FIRST CYCLE (DAY 1 Q 21)
     Route: 042
     Dates: start: 20170502
  2. CARBOPLATIN. [Suspect]
     Active Substance: CARBOPLATIN
     Indication: NEOPLASM PROGRESSION
     Dosage: PATIENT UNDERWENT FIRST CYCLE (DAY 1 Q 21)
     Route: 042
     Dates: start: 20170502

REACTIONS (10)
  - Asthenia [Recovering/Resolving]
  - Pain [Recovering/Resolving]
  - Decreased appetite [Not Recovered/Not Resolved]
  - Paraesthesia [Recovering/Resolving]
  - Productive cough [Recovered/Resolved]
  - Headache [Recovering/Resolving]
  - Pyrexia [Recovered/Resolved]
  - Diarrhoea [Recovering/Resolving]
  - Dysgeusia [Not Recovered/Not Resolved]
  - Off label use [Unknown]

NARRATIVE: CASE EVENT DATE: 20170503
